FAERS Safety Report 18998917 (Version 1)
Quarter: 2021Q1

REPORT INFORMATION
  Report Type: Spontaneous
  Country: US (occurrence: US)
  Receive Date: 20210312
  Receipt Date: 20210312
  Transmission Date: 20210420
  Serious: Yes (Hospitalization, Other)
  Sender: FDA-Public Use
  Company Number: US-BRISTOL-MYERS SQUIBB COMPANY-BMS-2021-022670

PATIENT
  Age: 68 Year
  Sex: Female
  Weight: 89.3 kg

DRUGS (1)
  1. ELIQUIS [Suspect]
     Active Substance: APIXABAN
     Indication: HYSTERECTOMY
     Dosage: UNK
     Route: 048
     Dates: start: 20201219

REACTIONS (3)
  - Intentional product use issue [Unknown]
  - Rash macular [Recovered/Resolved]
  - Renal failure [Recovering/Resolving]

NARRATIVE: CASE EVENT DATE: 20201219
